FAERS Safety Report 9972926 (Version 2)
Quarter: 2014Q1

REPORT INFORMATION
  Report Type: Spontaneous
  Country: JP (occurrence: JP)
  Receive Date: 20140306
  Receipt Date: 20140306
  Transmission Date: 20141002
  Serious: Yes (Hospitalization, Other)
  Sender: FDA-Public Use
  Company Number: JP-WATSON-2014-02411

PATIENT
  Age: 55 Year
  Sex: Male

DRUGS (8)
  1. ISONIAZID [Suspect]
     Indication: PULMONARY TUBERCULOSIS
     Dosage: 300 MG, DAILY
     Route: 065
  2. ISONIAZID [Suspect]
     Indication: EXTRAPULMONARY TUBERCULOSIS
  3. RIFAMPICIN [Concomitant]
     Indication: PULMONARY TUBERCULOSIS
     Dosage: 450 MG, DAILY
  4. RIFAMPICIN [Concomitant]
     Indication: EXTRAPULMONARY TUBERCULOSIS
  5. ETHAMBUTOL [Concomitant]
     Indication: PULMONARY TUBERCULOSIS
     Dosage: 500 MG, DAILY - ON DYALISIS DAY
  6. ETHAMBUTOL [Concomitant]
     Indication: EXTRAPULMONARY TUBERCULOSIS
  7. PYRIDOXINE [Concomitant]
     Indication: PULMONARY TUBERCULOSIS
     Dosage: 30 MG, DAILY
  8. PYRIDOXINE [Concomitant]
     Indication: EXTRAPULMONARY TUBERCULOSIS

REACTIONS (4)
  - Altered state of consciousness [Recovering/Resolving]
  - Feeling drunk [Recovered/Resolved]
  - Nausea [Unknown]
  - Drug level increased [Unknown]
